FAERS Safety Report 4325472-2 (Version None)
Quarter: 2004Q1

REPORT INFORMATION
  Report Type: 
  Country: None (occurrence: None)
  Receive Date: 20040324
  Receipt Date: 20040309
  Transmission Date: 20041129
  Serious: No
  Sender: FDA-Public Use
  Company Number: US-JNFOC-20031200544

PATIENT
  Age: 57 Year
  Sex: Female

DRUGS (5)
  1. DITROPAN XL [Suspect]
     Dosage: ORAL
     Route: 048
  2. VOLTAREN-XR [Concomitant]
  3. SYNTHROID [Concomitant]
  4. PROPANOL (PROPANOLOL) [Concomitant]
  5. LESCOL-XL (FLUVASTATIN) [Concomitant]

REACTIONS (1)
  - NO ADVERSE DRUG EFFECT [None]
